FAERS Safety Report 18922964 (Version 2)
Quarter: 2021Q1

REPORT INFORMATION
  Report Type: Spontaneous
  Country: US (occurrence: US)
  Receive Date: 20210222
  Receipt Date: 20210307
  Transmission Date: 20210420
  Serious: No
  Sender: FDA-Public Use
  Company Number: US-ASTRAZENECA-2021A065317

PATIENT
  Age: 706 Month
  Sex: Male
  Weight: 87.1 kg

DRUGS (9)
  1. DAPSONE ANTIBIOTIC [Concomitant]
     Indication: TOXOPLASMOSIS
     Dosage: EVERY DAY
  2. BYDUREON [Suspect]
     Active Substance: EXENATIDE
     Indication: DIABETES MELLITUS
     Route: 058
     Dates: start: 202010
  3. METFORMIN [Concomitant]
     Active Substance: METFORMIN HYDROCHLORIDE
     Indication: DIABETES MELLITUS
     Dosage: ONCE A WEEK
  4. DARUNAVIR , GENERIC FOR MARINOL [Concomitant]
     Indication: ANXIETY
  5. LISONPRIOL [Concomitant]
     Indication: RENAL DISORDER
  6. GABAPENTIN. [Concomitant]
     Active Substance: GABAPENTIN
     Indication: NEUROPATHY PERIPHERAL
  7. ROSUVASTATIN. [Suspect]
     Active Substance: ROSUVASTATIN
     Indication: BLOOD CHOLESTEROL ABNORMAL
     Dosage: 20
     Route: 048
  8. CELECOXIB. [Concomitant]
     Active Substance: CELECOXIB
     Indication: ARTHRITIS
     Dosage: 400 DAILY
  9. DAPSONE ANTIBIOTIC [Concomitant]
     Indication: PNEUMONIA
     Dosage: EVERY DAY

REACTIONS (10)
  - Visual impairment [Not Recovered/Not Resolved]
  - Needle issue [Unknown]
  - Vision blurred [Unknown]
  - Wrong technique in device usage process [Unknown]
  - Device malfunction [Unknown]
  - Product dose omission issue [Unknown]
  - Diarrhoea [Not Recovered/Not Resolved]
  - Intentional dose omission [Unknown]
  - Early satiety [Unknown]
  - Haematochezia [Not Recovered/Not Resolved]

NARRATIVE: CASE EVENT DATE: 202012
